FAERS Safety Report 21157732 (Version 2)
Quarter: 2022Q3

REPORT INFORMATION
  Report Type: Spontaneous
  Country: BR (occurrence: BR)
  Receive Date: 20220801
  Receipt Date: 20220803
  Transmission Date: 20221026
  Serious: Yes (Other)
  Sender: FDA-Public Use
  Company Number: BR-PFIZER INC-202200856261

PATIENT
  Sex: Female

DRUGS (2)
  1. ALPRAZOLAM [Suspect]
     Active Substance: ALPRAZOLAM
     Indication: Anxiety
     Dosage: 1 MG
  2. ALPRAZOLAM [Suspect]
     Active Substance: ALPRAZOLAM
     Dosage: 2 MG

REACTIONS (3)
  - Diabetes mellitus [Unknown]
  - Influenza [Unknown]
  - Cough [Unknown]
